FAERS Safety Report 19668751 (Version 1)
Quarter: 2021Q3

REPORT INFORMATION
  Report Type: Report from Study
  Country: AR (occurrence: AR)
  Receive Date: 20210806
  Receipt Date: 20210806
  Transmission Date: 20211014
  Serious: Yes (Hospitalization)
  Sender: FDA-Public Use
  Company Number: AR-TAKEDA-AR201945471

PATIENT
  Age: 15 Year
  Sex: Male
  Weight: 31.5 kg

DRUGS (2)
  1. IDURSULFASE [Suspect]
     Active Substance: IDURSULFASE
     Indication: MUCOPOLYSACCHARIDOSIS II
     Dosage: 6 MILLIGRAM, 1X/WEEK
     Route: 050
     Dates: start: 2006, end: 20191207
  2. IDURSULFASE [Suspect]
     Active Substance: IDURSULFASE
     Dosage: 3 DOSAGE FORM
     Route: 042
     Dates: start: 20081021

REACTIONS (4)
  - Pyrexia [Recovered/Resolved]
  - Secretion discharge [Recovering/Resolving]
  - Gastric disorder [Recovered/Resolved]
  - Bronchospasm [Recovered/Resolved]

NARRATIVE: CASE EVENT DATE: 20191213
